FAERS Safety Report 7116673-9 (Version None)
Quarter: 2010Q4

REPORT INFORMATION
  Report Type: 
  Country: None (occurrence: None)
  Receive Date: 20101122
  Receipt Date: 20101111
  Transmission Date: 20110411
  Serious: Yes (Hospitalization)
  Sender: FDA-Public Use
  Company Number: B0679496A

PATIENT
  Sex: Female

DRUGS (3)
  1. LAMICTAL [Suspect]
     Indication: EPILEPSY
     Route: 048
     Dates: start: 20100727, end: 20100907
  2. TEGRETOL [Concomitant]
     Indication: EPILEPSY
     Route: 048
     Dates: start: 20080301, end: 20100907
  3. TOPIRAMATE [Concomitant]
     Indication: EPILEPSY
     Route: 048
     Dates: start: 20081014, end: 20100824

REACTIONS (15)
  - APHTHOUS STOMATITIS [None]
  - BLISTER [None]
  - ERYTHEMA [None]
  - LIP EROSION [None]
  - LYMPHADENOPATHY [None]
  - OEDEMA [None]
  - PURPURA [None]
  - PYREXIA [None]
  - RASH [None]
  - RASH GENERALISED [None]
  - SKIN DISORDER [None]
  - SKIN EROSION [None]
  - STEVENS-JOHNSON SYNDROME [None]
  - TONGUE COATED [None]
  - TONGUE ULCERATION [None]
